FAERS Safety Report 11273674 (Version 1)
Quarter: 2015Q3

REPORT INFORMATION
  Report Type: Spontaneous
  Country: US (occurrence: US)
  Receive Date: 20150715
  Receipt Date: 20150715
  Transmission Date: 20151125
  Serious: No
  Sender: FDA-Public Use
  Company Number: US-ENDO PHARMACEUTICALS INC.-201411135

PATIENT
  Age: 59 Year
  Sex: Male
  Weight: 136.2 kg

DRUGS (4)
  1. ROSUVASTATIN [Concomitant]
     Active Substance: ROSUVASTATIN
  2. ASPIRIN. [Concomitant]
     Active Substance: ASPIRIN
  3. EDEX [Suspect]
     Active Substance: ALPROSTADIL
     Dates: start: 20141120, end: 20141120
  4. OMEPRAZOLE. [Concomitant]
     Active Substance: OMEPRAZOLE

REACTIONS (2)
  - Penile swelling [Not Recovered/Not Resolved]
  - Penile pain [Not Recovered/Not Resolved]

NARRATIVE: CASE EVENT DATE: 20141120
